FAERS Safety Report 8644427 (Version 3)
Quarter: 2012Q4

REPORT INFORMATION
  Report Type: Report from Study
  Country: BE (occurrence: BE)
  Receive Date: 20120629
  Receipt Date: 20120925
  Transmission Date: 20130627
  Serious: Yes (Death, Life-Threatening, Hospitalization, Other)
  Sender: FDA-Public Use
  Company Number: BE-CELGENEUS-013-21880-11021080

PATIENT
  Age: 72 Year
  Sex: Male
  Weight: 80 kg

DRUGS (26)
  1. REVLIMID [Suspect]
     Indication: MULTIPLE MYELOMA
     Dosage: 25 Milligram
     Route: 048
     Dates: start: 20100702
  2. REVLIMID [Suspect]
     Dosage: 25 Milligram
     Route: 048
     Dates: start: 20100806, end: 20100914
  3. REVLIMID [Suspect]
     Dosage: 25 Milligram
     Route: 048
     Dates: end: 20100926
  4. DEXAMETHASONE [Suspect]
     Indication: MULTIPLE MYELOMA
     Dosage: 5.7143 Milligram
     Route: 048
     Dates: start: 20100702
  5. DEXAMETHASONE [Suspect]
     Dosage: 5.7143 Milligram
     Route: 048
     Dates: start: 20100806, end: 20100914
  6. DEXAMETHASONE [Suspect]
     Dosage: 5.7143 Milligram
     Route: 048
     Dates: end: 20100926
  7. BELSAR [Concomitant]
     Indication: HYPERTENSION
     Dosage: 40 Milligram
     Route: 048
  8. CORUNO [Concomitant]
     Indication: ANGINA PECTORIS
     Dosage: 16 Milligram
     Route: 048
  9. GABAPENTINE [Concomitant]
     Indication: NEUROPATHY
     Dosage: 900 Milligram
     Route: 048
     Dates: start: 20090316
  10. LASIX [Concomitant]
     Indication: FLUID RETENTION
     Dosage: 40 Milligram
     Route: 048
     Dates: start: 201007, end: 20100813
  11. LIPITOR [Concomitant]
     Indication: HYPERCHOLESTEROLEMIA
     Dosage: 20 Milligram
     Route: 048
  12. PANTOMED [Concomitant]
     Indication: GASTROESOPHAGEAL REFLUX
     Dosage: 20 Milligram
     Route: 048
     Dates: start: 20100816
  13. TILDIEM [Concomitant]
     Indication: ANGINA PECTORIS
     Dosage: 300 Milligram
     Route: 048
  14. DUROGESIC [Concomitant]
     Indication: PAIN
     Dosage: 18.75 Microgram
     Route: 023
     Dates: start: 20100816, end: 20100817
  15. DAFALGAN [Concomitant]
     Indication: PAIN
     Dosage: 2 Gram
     Route: 048
     Dates: start: 20100816
  16. DAFALGAN [Concomitant]
     Dosage: 500 Milligram
     Route: 048
     Dates: start: 20100824, end: 20100824
  17. VOLTAREN [Concomitant]
     Indication: PAIN
     Dosage: 150 Milligram
     Route: 048
     Dates: start: 20100816
  18. SINTROM [Concomitant]
     Indication: THROMBOSIS PROPHYLAXIS
     Dosage: 1 Milligram
     Route: 048
     Dates: start: 20100817, end: 20100819
  19. SINTROM [Concomitant]
     Dosage: 3 Milligram
     Route: 048
     Dates: start: 20100820
  20. ASAFLOW [Concomitant]
     Indication: ANGINA PECTORIS
     Dosage: 160 Milligram
     Route: 048
     Dates: start: 20100816
  21. ASAFLOW [Concomitant]
     Dosage: 3 Milligram
     Route: 048
     Dates: start: 20100820
  22. CONTRAMAL [Concomitant]
     Indication: PAIN
     Dosage: 60 Drops
     Route: 048
     Dates: start: 20100820
  23. CONTRAMAL [Concomitant]
     Dosage: 3 Milligram
     Route: 048
     Dates: start: 20100820
  24. SIPRALEXA [Concomitant]
     Indication: DEPRESSION
     Dosage: 10 Milligram
     Route: 048
     Dates: start: 20100817
  25. AUGMENTIN [Concomitant]
     Indication: ANTI-INFECTIVE THERAPY
     Dosage: 3000 Milligram
     Route: 041
     Dates: start: 20100816, end: 20100820
  26. PERFUSALGAN [Concomitant]
     Indication: PAIN
     Dosage: 5 Gram
     Route: 041
     Dates: start: 20100816, end: 20100822

REACTIONS (3)
  - Pancreatic carcinoma metastatic [Fatal]
  - General physical health deterioration [Fatal]
  - General physical health deterioration [Recovered/Resolved]
